FAERS Safety Report 6010820-8 (Version None)
Quarter: 2008Q4

REPORT INFORMATION
  Report Type: 
  Country: None (occurrence: None)
  Receive Date: 20081218
  Receipt Date: 20081211
  Transmission Date: 20090506
  Serious: Yes (Death, Hospitalization)
  Sender: FDA-Public Use
  Company Number: PHHY2008DE31663

PATIENT
  Sex: Female

DRUGS (11)
  1. ESIDRIX [Suspect]
     Indication: HYPERTENSION
     Dosage: UNK
     Dates: start: 20060519
  2. BISOPROLOL FUMARATE [Suspect]
     Indication: ATRIAL FIBRILLATION
     Dosage: UNK
     Dates: start: 20060508
  3. ALDACTONE [Suspect]
     Indication: OEDEMA
     Dosage: UNK
     Dates: start: 20060422
  4. ALLOPURINOL [Suspect]
     Indication: HYPERURICAEMIA
     Dosage: UNK
     Dates: start: 20060524
  5. XIMOVAN [Suspect]
     Indication: SLEEP DISORDER
     Dosage: UNK
     Dates: start: 20060604, end: 20060615
  6. MARCUMAR [Concomitant]
     Indication: ATRIAL FIBRILLATION
     Dosage: UNK
     Dates: start: 20060427
  7. NOCTAMID [Concomitant]
     Indication: SLEEP DISORDER
     Dosage: UNK
     Dates: start: 20060507, end: 20060524
  8. FERRO-SANOL DUODENAL [Concomitant]
     Dosage: UNK
     Dates: start: 20060519, end: 20060601
  9. NEXIUM [Concomitant]
     Indication: GASTRIC DISORDER
     Dosage: UNK
     Dates: start: 20060507, end: 20060601
  10. INEGY [Concomitant]
     Indication: HYPERCHOLESTEROLAEMIA
     Dosage: UNK
     Dates: start: 20060509, end: 20060601
  11. STILNOX                                 /FRA/ [Concomitant]
     Indication: SLEEP DISORDER
     Dosage: UNK
     Dates: start: 20060524, end: 20060601

REACTIONS (11)
  - ANAL EROSION [None]
  - BLISTER [None]
  - CONJUNCTIVITIS [None]
  - DEATH [None]
  - LIP EROSION [None]
  - NIKOLSKY'S SIGN [None]
  - OCULAR HYPERAEMIA [None]
  - ORAL MUCOSA EROSION [None]
  - PYREXIA [None]
  - RASH MACULAR [None]
  - STEVENS-JOHNSON SYNDROME [None]
